FAERS Safety Report 24965580 (Version 1)
Quarter: 2025Q1

REPORT INFORMATION
  Report Type: Other
  Country: CA (occurrence: CA)
  Receive Date: 20250213
  Receipt Date: 20250213
  Transmission Date: 20250409
  Serious: No
  Sender: TOLMAR
  Company Number: CA-20250122-b11e20

PATIENT
  Sex: Male

DRUGS (4)
  1. ELIGARD [Suspect]
     Active Substance: LEUPROLIDE ACETATE
     Indication: Prostate cancer
     Dosage: 22.5MG EVERY 3 MONTHS
     Route: 058
     Dates: start: 20240807
  2. ELIGARD [Suspect]
     Active Substance: LEUPROLIDE ACETATE
     Dosage: 22.5MG EVERY 3 MONTHS
     Route: 058
     Dates: start: 20250122
  3. ELIGARD [Suspect]
     Active Substance: LEUPROLIDE ACETATE
     Indication: Prostate cancer
     Route: 058
  4. GABAPENTIN [Concomitant]
     Active Substance: GABAPENTIN
     Indication: Back pain
     Dosage: 100MG ONCE A DAY
     Dates: start: 202409

REACTIONS (3)
  - Balance disorder [Unknown]
  - Muscle atrophy [Unknown]
  - Fatigue [Unknown]
